FAERS Safety Report 9498918 (Version 2)
Quarter: 2013Q3

REPORT INFORMATION
  Report Type: Spontaneous
  Country: CA (occurrence: CA)
  Receive Date: 20130904
  Receipt Date: 20130904
  Transmission Date: 20140515
  Serious: Yes (Other)
  Sender: FDA-Public Use
  Company Number: CA-ROCHE-GNE289261

PATIENT
  Age: 41 Year
  Sex: Female

DRUGS (5)
  1. XOLAIR [Suspect]
     Indication: ASTHMA
     Route: 058
     Dates: start: 20060228
  2. XOLAIR [Suspect]
     Route: 058
     Dates: start: 20090407
  3. ADVAIR [Concomitant]
  4. SINGULAR [Concomitant]
  5. SYMBICORT [Concomitant]

REACTIONS (4)
  - Presyncope [Recovered/Resolved]
  - Seasonal allergy [Unknown]
  - Skin test positive [Unknown]
  - Blood immunoglobulin E increased [Unknown]
